FAERS Safety Report 6965223-6 (Version None)
Quarter: 2010Q3

REPORT INFORMATION
  Report Type: 
  Country: None (occurrence: None)
  Receive Date: 20100903
  Receipt Date: 20100823
  Transmission Date: 20110219
  Serious: Yes (Other)
  Sender: FDA-Public Use
  Company Number: PHHY2010MX27093

PATIENT
  Sex: Female

DRUGS (1)
  1. FEMARA [Suspect]
     Indication: BREAST CANCER
     Dosage: 2.5 MG, DAILY
     Route: 048
     Dates: start: 20051001, end: 20100219

REACTIONS (4)
  - BONE DISORDER [None]
  - BONE PAIN [None]
  - METASTASES TO BONE [None]
  - MUSCULAR WEAKNESS [None]
